FAERS Safety Report 19126625 (Version 1)
Quarter: 2021Q2

REPORT INFORMATION
  Report Type: Spontaneous
  Country: SA (occurrence: SA)
  Receive Date: 20210413
  Receipt Date: 20210413
  Transmission Date: 20210717
  Serious: Yes (Death)
  Sender: FDA-Public Use
  Company Number: SA-TOLMAR, INC.-21SA026454

PATIENT
  Age: 74 Year
  Sex: Female

DRUGS (3)
  1. MEROPENEM. [Concomitant]
     Active Substance: MEROPENEM
     Indication: BACTERAEMIA
     Dosage: UNK
     Route: 065
  2. VANCOMYCIN [Suspect]
     Active Substance: VANCOMYCIN
     Indication: CLOSTRIDIUM DIFFICILE INFECTION
     Route: 048
  3. METRONIDAZOLE. [Suspect]
     Active Substance: METRONIDAZOLE
     Indication: CLOSTRIDIUM DIFFICILE INFECTION
     Dosage: UNK
     Route: 042

REACTIONS (1)
  - Colitis [Fatal]
